FAERS Safety Report 12578767 (Version 1)
Quarter: 2016Q3

REPORT INFORMATION
  Report Type: Spontaneous
  Country: US (occurrence: US)
  Receive Date: 20160721
  Receipt Date: 20160721
  Transmission Date: 20161109
  Serious: No
  Sender: FDA-Public Use
  Company Number: US-BEH-2016071135

PATIENT
  Age: 56 Year
  Sex: Female
  Weight: 88.89 kg

DRUGS (55)
  1. COUMADIN [Concomitant]
     Active Substance: WARFARIN SODIUM
  2. TRILIPIX [Concomitant]
     Active Substance: FENOFIBRIC ACID
  3. BACTROBAN [Concomitant]
     Active Substance: MUPIROCIN\MUPIROCIN CALCIUM
  4. CUBICIN [Concomitant]
     Active Substance: DAPTOMYCIN
  5. KLONOPIN [Concomitant]
     Active Substance: CLONAZEPAM
  6. EPIPEN [Concomitant]
     Active Substance: EPINEPHRINE
  7. LIDOCAINE/PRILOCAINE [Concomitant]
     Active Substance: LIDOCAINE\PRILOCAINE
  8. SYNTHROID [Concomitant]
     Active Substance: LEVOTHYROXINE SODIUM
  9. LACTAID [Concomitant]
     Active Substance: LACTASE
  10. PROBIOTIC                          /06395501/ [Concomitant]
     Active Substance: BIFIDOBACTERIUM ANIMALIS SUBSP. LACTIS
  11. CALCIUM + D PLUS MINERAL [Concomitant]
  12. VITAMIN B12 [Concomitant]
     Active Substance: CYANOCOBALAMIN
  13. LOPRESSOR [Concomitant]
     Active Substance: METOPROLOL TARTRATE
  14. POTASSIUM [Concomitant]
     Active Substance: POTASSIUM
  15. ENABLEX [Concomitant]
     Active Substance: DARIFENACIN HYDROBROMIDE
  16. NOVOLOG [Concomitant]
     Active Substance: INSULIN ASPART
  17. ZINC [Concomitant]
     Active Substance: ZINC\ZINC CHLORIDE
  18. HIZENTRA [Suspect]
     Active Substance: HUMAN IMMUNOGLOBULIN G
     Dosage: UNK
     Route: 058
  19. DIPHENHYDRAMINE. [Concomitant]
     Active Substance: DIPHENHYDRAMINE
  20. MICARDIS [Concomitant]
     Active Substance: TELMISARTAN
  21. ZANAFLEX [Concomitant]
     Active Substance: TIZANIDINE HYDROCHLORIDE
  22. REGLAN [Concomitant]
     Active Substance: METOCLOPRAMIDE HYDROCHLORIDE
  23. METHOTREXATE. [Concomitant]
     Active Substance: METHOTREXATE
  24. FOLIC ACID. [Concomitant]
     Active Substance: FOLIC ACID
  25. NEXIUM [Concomitant]
     Active Substance: ESOMEPRAZOLE MAGNESIUM
  26. DOXEPIN                            /00138002/ [Concomitant]
     Active Substance: DOXEPIN
  27. AMARYL [Concomitant]
     Active Substance: GLIMEPIRIDE
  28. MULTIVITAMIN                       /00097801/ [Concomitant]
     Active Substance: VITAMINS
  29. CLARINEX                           /01202601/ [Concomitant]
     Active Substance: LORATADINE\PSEUDOEPHEDRINE SULFATE
  30. HIZENTRA [Suspect]
     Active Substance: HUMAN IMMUNOGLOBULIN G
     Indication: IMMUNODEFICIENCY COMMON VARIABLE
     Dosage: UNK
     Route: 058
  31. HIZENTRA [Suspect]
     Active Substance: HUMAN IMMUNOGLOBULIN G
     Dosage: UNK
     Route: 058
  32. HIZENTRA [Suspect]
     Active Substance: HUMAN IMMUNOGLOBULIN G
     Dosage: UNK
     Route: 058
  33. LMX                                /00033401/ [Concomitant]
  34. CRESTOR [Concomitant]
     Active Substance: ROSUVASTATIN CALCIUM
  35. MUCINEX [Concomitant]
     Active Substance: GUAIFENESIN
  36. ELOCON [Concomitant]
     Active Substance: MOMETASONE FUROATE
  37. NYSTATIN. [Concomitant]
     Active Substance: NYSTATIN
  38. PROAIR HFA [Concomitant]
     Active Substance: ALBUTEROL SULFATE
  39. ACETAMINOPHEN. [Concomitant]
     Active Substance: ACETAMINOPHEN
  40. LIDOCAINE. [Concomitant]
     Active Substance: LIDOCAINE
  41. LYRICA [Concomitant]
     Active Substance: PREGABALIN
  42. LASIX [Concomitant]
     Active Substance: FUROSEMIDE
  43. BENZONATATE. [Concomitant]
     Active Substance: BENZONATATE
  44. FLONASE [Concomitant]
     Active Substance: FLUTICASONE PROPIONATE
  45. FERROUS FUMARATE [Concomitant]
     Active Substance: FERROUS FUMARATE
  46. SINGULAIR [Concomitant]
     Active Substance: MONTELUKAST SODIUM
  47. HIZENTRA [Suspect]
     Active Substance: HUMAN IMMUNOGLOBULIN G
     Dosage: 27 G, QW
     Route: 058
     Dates: start: 20141029
  48. HYDROXYZINE [Concomitant]
     Active Substance: HYDROXYZINE\HYDROXYZINE HYDROCHLORIDE
  49. REQUIP [Concomitant]
     Active Substance: ROPINIROLE HYDROCHLORIDE
  50. LANTUS [Concomitant]
     Active Substance: INSULIN GLARGINE
  51. VITAMIN C [Concomitant]
     Active Substance: ASCORBIC ACID
  52. NEUPRO [Concomitant]
     Active Substance: ROTIGOTINE
  53. NEURONTIN [Concomitant]
     Active Substance: GABAPENTIN
  54. NUCYNTA [Concomitant]
     Active Substance: TAPENTADOL HYDROCHLORIDE
  55. PREDNISOLONE. [Concomitant]
     Active Substance: PREDNISOLONE

REACTIONS (1)
  - Sinusitis [Unknown]

NARRATIVE: CASE EVENT DATE: 201603
